FAERS Safety Report 16254790 (Version 3)
Quarter: 2019Q4

REPORT INFORMATION
  Report Type: Report from Study
  Country: ES (occurrence: ES)
  Receive Date: 20190430
  Receipt Date: 20191008
  Transmission Date: 20200122
  Serious: Yes (Hospitalization, Other)
  Sender: FDA-Public Use
  Company Number: ES-BRISTOL-MYERS SQUIBB COMPANY-BMS-2019-041695

PATIENT
  Age: 55 Year
  Sex: Male

DRUGS (3)
  1. CARVEDILOL. [Concomitant]
     Active Substance: CARVEDILOL
     Indication: HAEMORRHAGE PROPHYLAXIS
     Dosage: 6.25 MILLIGRAM, DAILY
     Route: 048
     Dates: start: 20151212
  2. LORAZEPAM. [Concomitant]
     Active Substance: LORAZEPAM
     Indication: INSOMNIA
     Dosage: 1 MILLIGRAM DAILY
     Route: 048
     Dates: start: 20190118
  3. NIVOLUMAB [Suspect]
     Active Substance: NIVOLUMAB
     Indication: HEPATOCELLULAR CARCINOMA
     Dosage: 240 MILLIGRAM, Q2WK
     Route: 042
     Dates: start: 20180412

REACTIONS (1)
  - Diabetes with hyperosmolarity [Recovered/Resolved with Sequelae]

NARRATIVE: CASE EVENT DATE: 20190416
